FAERS Safety Report 15658141 (Version 1)
Quarter: 2018Q4

REPORT INFORMATION
  Report Type: Spontaneous
  Country: US (occurrence: US)
  Receive Date: 20181115
  Receipt Date: 20181115
  Transmission Date: 20190205
  Serious: Yes (Death)
  Sender: FDA-Public Use
  Company Number: None

PATIENT
  Age: 59 Year
  Sex: Male

DRUGS (11)
  1. LEVOTHYROXINE. [Concomitant]
     Active Substance: LEVOTHYROXINE
  2. TESTOSTERONE. [Concomitant]
     Active Substance: TESTOSTERONE
  3. PRAVASTATIN. [Concomitant]
     Active Substance: PRAVASTATIN
  4. SERTRALINE [Concomitant]
     Active Substance: SERTRALINE HYDROCHLORIDE
  5. METFORMIN [Concomitant]
     Active Substance: METFORMIN HYDROCHLORIDE
  6. HUMATROPE [Suspect]
     Active Substance: SOMATROPIN
     Indication: HYPOPITUITARISM
     Dosage: ?          OTHER DOSE:0.4MG;?
     Route: 058
     Dates: start: 20160407, end: 20181107
  7. HYDROCORTISONE. [Concomitant]
     Active Substance: HYDROCORTISONE
  8. PRAVASTATIN. [Concomitant]
     Active Substance: PRAVASTATIN
  9. TADALAFIL. [Concomitant]
     Active Substance: TADALAFIL
  10. PHENYTOIN. [Concomitant]
     Active Substance: PHENYTOIN
  11. LEVOTHYROXINE. [Concomitant]
     Active Substance: LEVOTHYROXINE

REACTIONS (1)
  - Death [None]

NARRATIVE: CASE EVENT DATE: 20181107
